FAERS Safety Report 9349228 (Version 2)
Quarter: 2013Q2

REPORT INFORMATION
  Report Type: Spontaneous
  Country: US (occurrence: US)
  Receive Date: 20130614
  Receipt Date: 20130619
  Transmission Date: 20140414
  Serious: Yes (Hospitalization, Disabling, Other)
  Sender: FDA-Public Use
  Company Number: US-009507513-1103USA01102

PATIENT
  Sex: Female
  Weight: 54.89 kg

DRUGS (11)
  1. FOSAMAX [Suspect]
     Indication: OSTEOPOROSIS
     Dosage: 70 MG, QW
     Route: 048
     Dates: start: 20051011, end: 20070302
  2. ACTONEL [Suspect]
     Indication: OSTEOPOROSIS
     Dosage: 5 MG, QD
     Route: 048
     Dates: start: 20000129, end: 200510
  3. FOSAMAX PLUS D [Suspect]
     Indication: OSTEOPOROSIS
     Dosage: 70-2800
     Route: 048
     Dates: start: 20070308, end: 20090302
  4. ASCORBIC ACID [Concomitant]
     Dosage: UNK MG, UNK
     Dates: start: 200001
  5. ECHINACEA (UNSPECIFIED) [Concomitant]
     Dosage: UNK MG, UNK
     Dates: start: 200001
  6. ESTROVEN (NEW FORMULA) [Concomitant]
     Dates: start: 200311, end: 200610
  7. VITAMIN E [Concomitant]
     Dosage: UNK IU, UNK
     Dates: start: 200001
  8. OS-CAL + D [Concomitant]
     Dosage: UNK MG, UNK
     Dates: start: 200601, end: 2007
  9. MEVACOR [Concomitant]
     Indication: BLOOD CHOLESTEROL INCREASED
     Dates: start: 200504, end: 200805
  10. SIMVASTATIN [Concomitant]
     Dates: start: 200805
  11. FOSAMAX [Suspect]
     Indication: OSTEOPOROSIS
     Dosage: 70 MG, QW
     Route: 048
     Dates: start: 20090204, end: 20090302

REACTIONS (34)
  - Femur fracture [Recovering/Resolving]
  - Intramedullary rod insertion [Recovering/Resolving]
  - Femur fracture [Unknown]
  - Humerus fracture [Unknown]
  - Intramedullary rod insertion [Unknown]
  - Fall [Unknown]
  - Anaemia postoperative [Recovered/Resolved]
  - Joint injury [Unknown]
  - Low turnover osteopathy [Unknown]
  - Osteoarthritis [Not Recovered/Not Resolved]
  - Groin pain [Recovered/Resolved]
  - Gait disturbance [Unknown]
  - Groin pain [Recovered/Resolved]
  - Gait disturbance [Unknown]
  - Cataract [Unknown]
  - Cataract [Unknown]
  - Fall [Unknown]
  - Hypoaesthesia [Unknown]
  - Hypoaesthesia [Unknown]
  - Allergy to vaccine [Not Recovered/Not Resolved]
  - Sinusitis [Unknown]
  - Adverse drug reaction [Unknown]
  - Adverse drug reaction [Unknown]
  - Pain [Unknown]
  - Thyroid neoplasm [Unknown]
  - Tenosynovitis [Unknown]
  - Fall [Unknown]
  - Essential tremor [Unknown]
  - Chronic obstructive pulmonary disease [Not Recovered/Not Resolved]
  - Gastrooesophageal reflux disease [Unknown]
  - Back pain [Unknown]
  - Rash papular [Not Recovered/Not Resolved]
  - Rash erythematous [Not Recovered/Not Resolved]
  - Drug hypersensitivity [Not Recovered/Not Resolved]
